FAERS Safety Report 6997421-X (Version None)
Quarter: 2010Q3

REPORT INFORMATION
  Report Type: 
  Country: None (occurrence: None)
  Receive Date: 20100918
  Receipt Date: 20091007
  Transmission Date: 20110219
  Serious: No
  Sender: FDA-Public Use
  Company Number: US-WYE-H11482709

PATIENT
  Sex: Female

DRUGS (10)
  1. PRISTIQ [Suspect]
     Indication: DEPRESSION
     Route: 048
     Dates: start: 20090413, end: 20090620
  2. PRISTIQ [Suspect]
     Indication: ANXIETY
     Route: 048
     Dates: start: 20090621
  3. TOPAMAX [Concomitant]
  4. PROTONIX [Concomitant]
  5. LEVOTHYROXINE [Concomitant]
  6. PROPRANOLOL [Concomitant]
  7. SIMVASTATIN [Concomitant]
  8. NEXIUM [Concomitant]
  9. GEODON [Concomitant]
  10. PREMARIN [Concomitant]

REACTIONS (1)
  - DRY MOUTH [None]
